FAERS Safety Report 14832879 (Version 1)
Quarter: 2018Q2

REPORT INFORMATION
  Report Type: Spontaneous
  Country: US (occurrence: US)
  Receive Date: 20180501
  Receipt Date: 20180501
  Transmission Date: 20180711
  Serious: Yes (Hospitalization)
  Sender: FDA-Public Use
  Company Number: PHHY2018US069119

PATIENT
  Age: 18 Year
  Sex: Female

DRUGS (4)
  1. THALIDOMIDE [Concomitant]
     Active Substance: THALIDOMIDE
     Indication: OVARIAN GRANULOSA CELL TUMOUR
     Route: 065
  2. PREDNISONE. [Suspect]
     Active Substance: PREDNISONE
     Indication: PRODUCT USED FOR UNKNOWN INDICATION
     Dosage: UNK
     Route: 048
  3. INTERFERON [Concomitant]
     Active Substance: INTERFERON
     Indication: OVARIAN GRANULOSA CELL TUMOUR
     Route: 065
  4. BEVACIZUMAB. [Concomitant]
     Active Substance: BEVACIZUMAB
     Indication: OVARIAN GRANULOSA CELL TUMOUR
     Dosage: 4 MG, UNK
     Route: 065

REACTIONS (2)
  - Hypertensive crisis [Unknown]
  - Hypertension [Recovered/Resolved]
